FAERS Safety Report 19095679 (Version 1)
Quarter: 2021Q2

REPORT INFORMATION
  Report Type: Spontaneous
  Country: CN (occurrence: CN)
  Receive Date: 20210406
  Receipt Date: 20210406
  Transmission Date: 20210717
  Serious: Yes (Life-Threatening, Other)
  Sender: FDA-Public Use
  Company Number: CN-JIANGSU HENGRUI MEDICINE CO., LTD.-2108923

PATIENT
  Age: 21 Year
  Sex: Female

DRUGS (4)
  1. CISATRACURIUM BESYLATE INJECTION USP, 10 MG/5 ML (2 MG/ML) AND 200 MG/ [Suspect]
     Active Substance: CISATRACURIUM BESYLATE
     Indication: INDUCTION OF ANAESTHESIA
     Dates: start: 20161206, end: 20161206
  2. FENTANYL. [Suspect]
     Active Substance: FENTANYL
     Dates: start: 20161206, end: 20161206
  3. CALCIUM CHLORIDE, POTASSIUM CHLORIDE, SODIUM LACTATE [Concomitant]
     Dates: start: 20161206, end: 20161206
  4. INJECTION [Suspect]
     Active Substance: UNSPECIFIED INGREDIENT
     Dates: start: 20161206, end: 20161206

REACTIONS (1)
  - Anaphylactic shock [Recovered/Resolved]

NARRATIVE: CASE EVENT DATE: 20161206
